FAERS Safety Report 8973170 (Version 1)
Quarter: 2012Q4

REPORT INFORMATION
  Report Type: 
  Country: US (occurrence: US)
  Receive Date: 20121218
  Receipt Date: 20121218
  Transmission Date: 20130627
  Serious: No
  Sender: FDA-Public Use
  Company Number: US-VERTEX PHARMACEUTICALS INC.-2012-026191

PATIENT
  Sex: Male

DRUGS (8)
  1. KALYDECO [Suspect]
     Indication: CYSTIC FIBROSIS
     Dosage: 150 mg, bid
  2. PULMOZYME [Concomitant]
     Dosage: UNK
  3. ALBUTEROL [Concomitant]
  4. TOBI [Concomitant]
  5. ADEKS [Concomitant]
  6. ZENPEP [Concomitant]
     Dosage: 10000 IU, UNK
  7. AZITHROMYCIN [Concomitant]
     Dosage: 250 mg, UNK
  8. HYPERTONIC SALINE SOLUTION [Concomitant]

REACTIONS (2)
  - Constipation [Unknown]
  - Abdominal discomfort [Unknown]
